FAERS Safety Report 14771966 (Version 2)
Quarter: 2018Q2

REPORT INFORMATION
  Report Type: Spontaneous
  Country: US (occurrence: US)
  Receive Date: 20180417
  Receipt Date: 20180628
  Transmission Date: 20180711
  Serious: Yes (Hospitalization)
  Sender: FDA-Public Use
  Company Number: US-VIFOR (INTERNATIONAL) INC.-VIT-2018-03438

PATIENT
  Age: 65 Year
  Sex: Female

DRUGS (27)
  1. BASAGLAR [Concomitant]
     Active Substance: INSULIN GLARGINE
  2. FERROUS SULFATE. [Concomitant]
     Active Substance: FERROUS SULFATE
  3. GABAPENTIN. [Concomitant]
     Active Substance: GABAPENTIN
  4. MAGNESIUM HYDROXIDE. [Concomitant]
     Active Substance: MAGNESIUM HYDROXIDE
  5. VIRT-CAPS [Concomitant]
     Active Substance: ASCORBIC ACID\BIOTIN\CALCIUM PANTOTHENATE\CYANOCOBALAMIN\FOLIC ACID\NIACINAMIDE\PYRIDOXINE HYDROCHLORIDE\RIBOFLAVIN\THIAMINE MONONITRATE
  6. SALBUTAMOL SULFATE [Concomitant]
     Active Substance: ALBUTEROL SULFATE
  7. ATORVASTATIN CALCIUM. [Concomitant]
     Active Substance: ATORVASTATIN CALCIUM
  8. FLUTICASONE PROPIONATE. [Concomitant]
     Active Substance: FLUTICASONE PROPIONATE
  9. TRAZODONE HYDROCHLORIDE. [Concomitant]
     Active Substance: TRAZODONE HYDROCHLORIDE
  10. COLECALCIFEROL [Concomitant]
     Active Substance: CHOLECALCIFEROL
  11. IPRATROPIUM BROMIDE~~SALBUTAMOL SULFATE [Concomitant]
  12. VELTASSA [Suspect]
     Active Substance: PATIROMER
     Indication: HYPERKALAEMIA
     Route: 048
     Dates: start: 20171228
  13. DULOXETINE HYDROCHLORIDE. [Concomitant]
     Active Substance: DULOXETINE HYDROCHLORIDE
  14. GAVILAX [Concomitant]
     Active Substance: POLYETHYLENE GLYCOL 3350
  15. KIONEX [Concomitant]
     Active Substance: SODIUM POLYSTYRENE SULFONATE
  16. PARACETAMOL [Concomitant]
     Active Substance: ACETAMINOPHEN
  17. HYDRALAZINE HYDROCHLORIDE. [Concomitant]
     Active Substance: HYDRALAZINE HYDROCHLORIDE
  18. IPRATROPIUM [Concomitant]
     Active Substance: IPRATROPIUM
  19. FLUOXETINE HYDROCHLORIDE. [Concomitant]
     Active Substance: FLUOXETINE HYDROCHLORIDE
  20. HUMALOG [Concomitant]
     Active Substance: INSULIN LISPRO
  21. METOPROLOL TARTRATE. [Concomitant]
     Active Substance: METOPROLOL TARTRATE
  22. BUMETANIDE. [Concomitant]
     Active Substance: BUMETANIDE
  23. DOCUSATE SODIUM. [Concomitant]
     Active Substance: DOCUSATE SODIUM
  24. PANTOPRAZOLE SODIUM SESQUIHYDRATE [Concomitant]
     Active Substance: PANTOPRAZOLE SODIUM
  25. CLOPIDOGREL BISULFATE. [Concomitant]
     Active Substance: CLOPIDOGREL BISULFATE
  26. ISOSORBIDE. [Concomitant]
     Active Substance: ISOSORBIDE
  27. MELATONIN [Concomitant]
     Active Substance: MELATONIN

REACTIONS (2)
  - Hospitalisation [Unknown]
  - Renal failure [Unknown]

NARRATIVE: CASE EVENT DATE: 20180311
